FAERS Safety Report 25224542 (Version 3)
Quarter: 2025Q2

REPORT INFORMATION
  Report Type: Spontaneous
  Country: US (occurrence: US)
  Receive Date: 20250422
  Receipt Date: 20250523
  Transmission Date: 20250716
  Serious: No
  Sender: ROCHE
  Company Number: US-ROCHE-10000265257

PATIENT
  Age: 85 Year
  Sex: Male
  Weight: 68.04 kg

DRUGS (15)
  1. VABYSMO [Suspect]
     Active Substance: FARICIMAB-SVOA
     Indication: Neovascular age-related macular degeneration
     Route: 031
  2. EYLEA [Concomitant]
     Active Substance: AFLIBERCEPT
     Indication: Neovascular age-related macular degeneration
     Route: 031
  3. LISINOPRIL [Concomitant]
     Active Substance: LISINOPRIL
     Dosage: FORMULATION: PILLS
     Route: 048
  4. LISINOPRIL [Concomitant]
     Active Substance: LISINOPRIL
     Dosage: FORMULATION: PILLS
     Route: 048
  5. AMLODIPINE BESYLATE [Concomitant]
     Active Substance: AMLODIPINE BESYLATE
     Dosage: FORMULATION: PILL
     Route: 048
  6. ELIQUIS [Concomitant]
     Active Substance: APIXABAN
     Route: 048
  7. TAMSULOSIN HYDROCHLORIDE [Concomitant]
     Active Substance: TAMSULOSIN HYDROCHLORIDE
     Route: 048
  8. COPPER [Concomitant]
     Active Substance: COPPER
     Dosage: FORMULATION: PILLS
     Route: 048
  9. ZINC CITRATE [Concomitant]
     Active Substance: ZINC CITRATE
     Dosage: FORMULATION: PILLS
     Route: 048
  10. PREDNISONE [Concomitant]
     Active Substance: PREDNISONE
  11. AVASTIN [Concomitant]
     Active Substance: BEVACIZUMAB
     Dates: start: 20221012
  12. AVASTIN [Concomitant]
     Active Substance: BEVACIZUMAB
     Dates: start: 20220912
  13. AVASTIN [Concomitant]
     Active Substance: BEVACIZUMAB
     Dates: start: 20220812
  14. AVASTIN [Concomitant]
     Active Substance: BEVACIZUMAB
     Dates: start: 20220715
  15. AVASTIN [Concomitant]
     Active Substance: BEVACIZUMAB
     Dates: start: 20230118

REACTIONS (2)
  - Off label use [Unknown]
  - No adverse event [Unknown]
